FAERS Safety Report 8328342-8 (Version None)
Quarter: 2012Q2

REPORT INFORMATION
  Report Type: 
  Country: None (occurrence: None)
  Receive Date: 20120430
  Receipt Date: 20120416
  Transmission Date: 20120825
  Serious: Yes (Death, Other)
  Sender: FDA-Public Use
  Company Number: AUR-APL-2012-01895

PATIENT
  Age: 72 Year
  Sex: Male
  Weight: 137 kg

DRUGS (1)
  1. METFORMIN HCL [Suspect]
     Indication: DIABETES MELLITUS
     Dosage: 2000 MG (1000 MG, 1 IN 1 D), ORAL
     Route: 048

REACTIONS (3)
  - LACTIC ACIDOSIS [None]
  - UROSEPSIS [None]
  - RENAL FAILURE ACUTE [None]
